FAERS Safety Report 7592062-8 (Version None)
Quarter: 2011Q3

REPORT INFORMATION
  Report Type: 
  Country: None (occurrence: None)
  Receive Date: 20110705
  Receipt Date: 20110705
  Transmission Date: 20111222
  Serious: Yes (Hospitalization)
  Sender: FDA-Public Use
  Company Number: None

PATIENT
  Age: 54 Year
  Sex: Male

DRUGS (7)
  1. ASPIRIN [Concomitant]
  2. LORATADINE [Concomitant]
  3. DETROL LA [Concomitant]
  4. RENVELA [Concomitant]
  5. VALACYCLOVIR [Concomitant]
  6. REVLIMID [Suspect]
     Indication: MULTIPLE MYELOMA
     Dosage: 5MG QDX21D/28D ORALLY
     Route: 048
     Dates: start: 20101101, end: 20110401
  7. CALCIUM ACETATE [Concomitant]

REACTIONS (2)
  - SEPSIS [None]
  - PANCYTOPENIA [None]
